FAERS Safety Report 5045103-6 (Version None)
Quarter: 2006Q2

REPORT INFORMATION
  Report Type: 
  Country: None (occurrence: None)
  Receive Date: 20060605
  Receipt Date: 20060613
  Transmission Date: 20061013
  Serious: Yes (Life-Threatening, Other)
  Sender: FDA-Public Use
  Company Number: US200606003238

PATIENT
  Age: 73 Year
  Sex: Male
  Weight: 98.9 kg

DRUGS (8)
  1. HUMULIN 70/30 [Suspect]
     Indication: DIABETES MELLITUS
     Dosage: AS NEEDED
     Dates: start: 19960101
  2. ZESTRIL [Concomitant]
  3. ZIAC [Concomitant]
  4. SYNTHROID [Concomitant]
  5. CITRACAL + D (CALCIUM CITRATE, ERGOCALCIFEROL) [Concomitant]
  6. VITAMIN E [Concomitant]
  7. CENTRUM SILVER (ASCORBIC ACID, CALCIUM, MINERALS NOS, RETINOL, TOCOPHE [Concomitant]
  8. ACTOS [Concomitant]

REACTIONS (8)
  - CATARACT [None]
  - CHOLECYSTECTOMY [None]
  - CORONARY ARTERY DISEASE [None]
  - HYPERLIPIDAEMIA [None]
  - HYPOGLYCAEMIA [None]
  - JOINT ARTHROPLASTY [None]
  - OSTEOPENIA [None]
  - OXYGEN SATURATION DECREASED [None]
